FAERS Safety Report 24464178 (Version 2)
Quarter: 2024Q4

REPORT INFORMATION
  Report Type: Spontaneous
  Country: CO (occurrence: CO)
  Receive Date: 20241018
  Receipt Date: 20241022
  Transmission Date: 20250115
  Serious: Yes (Other)
  Sender: ROCHE
  Company Number: CO-002147023-NVSC2024CO200705

PATIENT
  Age: 37 Year
  Sex: Female

DRUGS (1)
  1. OMALIZUMAB [Suspect]
     Active Substance: OMALIZUMAB
     Indication: Asthma
     Dosage: 300 MG, Q4W
     Route: 050

REACTIONS (6)
  - Asthmatic crisis [Unknown]
  - Premature delivery [Unknown]
  - Hypertension [Unknown]
  - Maternal exposure during pregnancy [Unknown]
  - Off label use [Unknown]
  - Superimposed pre-eclampsia [Unknown]
